FAERS Safety Report 9829320 (Version 1)
Quarter: 2014Q1

REPORT INFORMATION
  Report Type: Spontaneous
  Country: IN (occurrence: IN)
  Receive Date: 20140120
  Receipt Date: 20140120
  Transmission Date: 20141002
  Serious: Yes (Hospitalization)
  Sender: FDA-Public Use
  Company Number: IN-ROCHE-1332634

PATIENT
  Age: 21 Year
  Sex: Female

DRUGS (3)
  1. TRETINOIN [Suspect]
     Indication: ACUTE PROMYELOCYTIC LEUKAEMIA
     Dosage: 6 WEEKS COURSE
     Route: 065
  2. DEXAMETHASONE [Concomitant]
     Route: 065
  3. AZITHROMYCIN [Concomitant]
     Route: 065

REACTIONS (6)
  - Pyrexia [Recovering/Resolving]
  - Ecchymosis [Recovering/Resolving]
  - Haemoptysis [Recovering/Resolving]
  - Dyspnoea [Recovering/Resolving]
  - Retinoic acid syndrome [Recovering/Resolving]
  - Gastroenteritis cryptosporidial [Recovering/Resolving]
